FAERS Safety Report 5220728-3 (Version None)
Quarter: 2007Q1

REPORT INFORMATION
  Report Type: 
  Country: None (occurrence: None)
  Receive Date: 20070125
  Receipt Date: 20070125
  Transmission Date: 20070707
  Serious: Yes (Hospitalization)
  Sender: FDA-Public Use
  Company Number: None

PATIENT
  Sex: Female
  Weight: 59 kg

DRUGS (6)
  1. GLEEVEC [Suspect]
     Indication: GLIOBLASTOMA MULTIFORME
     Dosage: 600MG QD
  2. HYDROXYUREA [Suspect]
     Dosage: 500MG BID
  3. TEGRETOL [Concomitant]
  4. DECADRON [Concomitant]
  5. CLONOPIN [Concomitant]
  6. KEPPRA [Concomitant]

REACTIONS (2)
  - DISEASE PROGRESSION [None]
  - PNEUMONIA [None]
